FAERS Safety Report 11931408 (Version 1)
Quarter: 2016Q1

REPORT INFORMATION
  Report Type: Spontaneous
  Country: US (occurrence: US)
  Receive Date: 20160120
  Receipt Date: 20160120
  Transmission Date: 20160526
  Serious: Yes (Other)
  Sender: FDA-Public Use
  Company Number: US-INCYTE CORPORATION-2015IN004791

PATIENT
  Age: 72 Year
  Sex: Female
  Weight: 48.6 kg

DRUGS (13)
  1. JAKAFI [Suspect]
     Active Substance: RUXOLITINIB
     Indication: MYELOFIBROSIS
     Dosage: 15 MG, BID
     Route: 048
     Dates: start: 20150430, end: 2015
  2. JAKAFI [Suspect]
     Active Substance: RUXOLITINIB
     Dosage: 5 MG, BID
     Route: 048
     Dates: start: 20150515, end: 20151007
  3. PROZAC [Concomitant]
     Active Substance: FLUOXETINE HYDROCHLORIDE
     Dosage: 10 MG, QD
     Route: 048
     Dates: start: 20150402
  4. AMBIEN [Concomitant]
     Active Substance: ZOLPIDEM TARTRATE
     Indication: SLEEP STUDY
     Dosage: 1-2 TABS AT HS NIGHT OF STUDY IF UNABLE TO SLEEP
     Route: 048
     Dates: start: 20151007
  5. DELTASONE [Concomitant]
     Active Substance: PREDNISONE
     Dosage: 30 MG, QD FOR 30 DAYS
     Route: 048
     Dates: start: 20151007
  6. LISINOPRIL. [Concomitant]
     Active Substance: LISINOPRIL
     Indication: HYPERTENSION
     Dosage: 15 MG, QD
     Route: 048
     Dates: start: 20150202
  7. CODEINE [Concomitant]
     Active Substance: CODEINE
  8. BABY ASPIRIN [Concomitant]
     Active Substance: ASPIRIN
  9. LORAZEPAM. [Concomitant]
     Active Substance: LORAZEPAM
  10. TENORMIN [Concomitant]
     Active Substance: ATENOLOL
     Dosage: UNK
     Dates: start: 20150402
  11. REVLIMID [Concomitant]
     Active Substance: LENALIDOMIDE
     Dosage: 5 MG, QD
     Route: 048
     Dates: start: 20150928
  12. REMERON [Concomitant]
     Active Substance: MIRTAZAPINE
     Dosage: 0.5 TABLET AT NIGHT
     Route: 048
     Dates: start: 20150402
  13. GABAPENTIN. [Concomitant]
     Active Substance: GABAPENTIN
     Dosage: 1-2 TABLETS AT NIGHT
     Route: 048
     Dates: start: 20150402

REACTIONS (4)
  - Anaemia [Unknown]
  - Platelet count decreased [Unknown]
  - Thrombocytopenia [Unknown]
  - Blood count abnormal [Unknown]

NARRATIVE: CASE EVENT DATE: 20150630
